FAERS Safety Report 13784513 (Version 2)
Quarter: 2018Q1

REPORT INFORMATION
  Report Type: Spontaneous
  Country: US (occurrence: US)
  Receive Date: 20170724
  Receipt Date: 20180123
  Transmission Date: 20180508
  Serious: No
  Sender: FDA-Public Use
  Company Number: US-IMPAX LABORATORIES, INC-2017-IPXL-01193

PATIENT
  Sex: Male
  Weight: 82 kg

DRUGS (8)
  1. RYTARY [Suspect]
     Active Substance: CARBIDOPA\LEVODOPA
     Dosage: 23.75/95 MG, 2 CAPSULES 3 TIMES A DAY
     Route: 048
     Dates: start: 20170302, end: 2017
  2. VITAMIN C [Concomitant]
     Active Substance: ASCORBIC ACID
     Indication: VITAMIN SUPPLEMENTATION
     Dosage: 500 MG, UNK
     Route: 065
  3. RYTARY [Suspect]
     Active Substance: CARBIDOPA\LEVODOPA
     Dosage: 23.75/95 MG, 2 CAPSULES 3 TIMES A DAY
     Route: 048
     Dates: start: 2017
  4. VITAMIN B12 [Concomitant]
     Active Substance: CYANOCOBALAMIN
     Indication: VITAMIN B12 DEFICIENCY
     Dosage: 5000 ?G, UNK
     Route: 060
  5. RYTARY [Suspect]
     Active Substance: CARBIDOPA\LEVODOPA
     Indication: PARKINSON^S DISEASE
     Dosage: 23.75/95 MG, 3 CAPSULES 3 TIMES A DAY
     Route: 048
     Dates: start: 20161114
  6. ASPIRIN. [Concomitant]
     Active Substance: ASPIRIN
     Indication: PRODUCT USED FOR UNKNOWN INDICATION
     Dosage: 81 MG, UNK
     Route: 065
  7. RYTARY [Suspect]
     Active Substance: CARBIDOPA\LEVODOPA
     Dosage: 23.75/95 MG, 3 CAPSULES 3 TIMES A DAY
     Route: 048
     Dates: start: 20170421
  8. CRANBERRY. [Concomitant]
     Active Substance: CRANBERRY
     Indication: KIDNEY INFECTION
     Dosage: 4200 MG, UNK
     Route: 065

REACTIONS (12)
  - Eye pruritus [Unknown]
  - Dry eye [Unknown]
  - Balance disorder [Not Recovered/Not Resolved]
  - Hypoacusis [Unknown]
  - Dizziness [Not Recovered/Not Resolved]
  - Intentional product use issue [Unknown]
  - Vision blurred [Not Recovered/Not Resolved]
  - Fatigue [Not Recovered/Not Resolved]
  - Ocular hyperaemia [Unknown]
  - Memory impairment [Not Recovered/Not Resolved]
  - Hallucination [Not Recovered/Not Resolved]
  - Diplopia [Recovered/Resolved]
